FAERS Safety Report 8420644-X (Version None)
Quarter: 2012Q2

REPORT INFORMATION
  Report Type: 
  Country: None (occurrence: None)
  Receive Date: 20120608
  Receipt Date: 20120601
  Transmission Date: 20120825
  Serious: No
  Sender: FDA-Public Use
  Company Number: US-BIOGENIDEC-2012BI019519

PATIENT
  Sex: Female

DRUGS (3)
  1. FLEXERIL [Concomitant]
     Indication: MUSCULOSKELETAL STIFFNESS
  2. TYSABRI [Suspect]
     Indication: MULTIPLE SCLEROSIS
     Route: 042
     Dates: start: 20100630, end: 20120413
  3. AVONEX [Concomitant]
     Indication: MULTIPLE SCLEROSIS
     Route: 030

REACTIONS (3)
  - THYROID NEOPLASM [None]
  - WHITE BLOOD CELL COUNT INCREASED [None]
  - DRUG EFFECT DECREASED [None]
